FAERS Safety Report 11750397 (Version 1)
Quarter: 2015Q4

REPORT INFORMATION
  Report Type: Spontaneous
  Country: VE (occurrence: VE)
  Receive Date: 20151118
  Receipt Date: 20151118
  Transmission Date: 20160304
  Serious: Yes (Hospitalization)
  Sender: FDA-Public Use
  Company Number: PHHY2015VE148557

PATIENT
  Sex: Female

DRUGS (2)
  1. STALEVO [Suspect]
     Active Substance: CARBIDOPA\ENTACAPONE\LEVODOPA
     Indication: PARKINSON^S DISEASE
     Dosage: 100 MG, UNK
     Route: 048
     Dates: start: 2004
  2. ENSURE [Concomitant]
     Active Substance: AMINO ACIDS\DEXTROSE\ELECTROLYTES NOS\SOYBEAN OIL\VITAMINS
     Indication: HYPOVITAMINOSIS
     Dosage: UNK
     Route: 065

REACTIONS (8)
  - Nervousness [Unknown]
  - Diarrhoea [Unknown]
  - Vomiting [Unknown]
  - Dehydration [Unknown]
  - Stress [Unknown]
  - Tremor [Unknown]
  - Depression [Unknown]
  - Anxiety [Unknown]
